FAERS Safety Report 20424452 (Version 1)
Quarter: 2022Q1

REPORT INFORMATION
  Report Type: Report from Study
  Country: US (occurrence: US)
  Receive Date: 20220203
  Receipt Date: 20220203
  Transmission Date: 20220424
  Serious: Yes (Other)
  Sender: FDA-Public Use
  Company Number: US-EXELIXIS-CABO-21042622

PATIENT
  Age: 57 Year
  Sex: Female

DRUGS (15)
  1. CABOMETYX [Suspect]
     Active Substance: CABOZANTINIB S-MALATE
     Indication: Renal cell carcinoma
     Dosage: 60 MG, QD
     Route: 048
     Dates: start: 202105
  2. CABOMETYX [Suspect]
     Active Substance: CABOZANTINIB S-MALATE
     Dosage: 40 MG, QD
     Route: 048
     Dates: start: 2021, end: 20211115
  3. CABOMETYX [Suspect]
     Active Substance: CABOZANTINIB S-MALATE
     Dosage: 40 MG, QD
     Route: 048
     Dates: start: 20211124
  4. NIFEDIPINE [Concomitant]
     Active Substance: NIFEDIPINE
  5. CARVEDILOL [Concomitant]
     Active Substance: CARVEDILOL
  6. FAMOTIDINE [Concomitant]
     Active Substance: FAMOTIDINE
  7. MEMANTINE [Concomitant]
     Active Substance: MEMANTINE
  8. POTASSIUM CHLORIDE [Concomitant]
     Active Substance: POTASSIUM CHLORIDE
     Dosage: UNK
  9. PROCHLORPERAZINE [Concomitant]
     Active Substance: PROCHLORPERAZINE
  10. CLONIDINE [Concomitant]
     Active Substance: CLONIDINE
  11. DEXAMETHASONE [Concomitant]
     Active Substance: DEXAMETHASONE
  12. CLOBETASOL [Concomitant]
     Active Substance: CLOBETASOL
     Dosage: UNK
  13. LOSARTAN [Concomitant]
     Active Substance: LOSARTAN
  14. MIRALAX [Concomitant]
     Active Substance: POLYETHYLENE GLYCOL 3350
  15. UREA [Concomitant]
     Active Substance: UREA

REACTIONS (17)
  - Hypertension [Not Recovered/Not Resolved]
  - Weight decreased [Unknown]
  - Malaise [Unknown]
  - Tachycardia [Unknown]
  - Hyperkeratosis [Recovered/Resolved]
  - Dry eye [Unknown]
  - Skin exfoliation [Unknown]
  - Erythema [Unknown]
  - Sensitive skin [Unknown]
  - Constipation [Recovered/Resolved]
  - Decreased appetite [Unknown]
  - Blood potassium decreased [Recovering/Resolving]
  - Pain in extremity [Not Recovered/Not Resolved]
  - Nausea [Recovering/Resolving]
  - Mouth haemorrhage [Not Recovered/Not Resolved]
  - Taste disorder [Not Recovered/Not Resolved]
  - Fatigue [Not Recovered/Not Resolved]

NARRATIVE: CASE EVENT DATE: 20210718
